FAERS Safety Report 13606038 (Version 5)
Quarter: 2017Q3

REPORT INFORMATION
  Report Type: Spontaneous
  Country: US (occurrence: US)
  Receive Date: 20170602
  Receipt Date: 20170829
  Transmission Date: 20171127
  Serious: No
  Sender: FDA-Public Use
  Company Number: US-PFIZER INC-2017242091

PATIENT
  Age: 62 Year
  Sex: Female
  Weight: 109.75 kg

DRUGS (3)
  1. IBRANCE [Suspect]
     Active Substance: PALBOCICLIB
     Dosage: 125 MG, CYCLIC (FOR 21 DAYS EVERY 28 DAYS)
     Route: 048
     Dates: start: 20170510
  2. IBRANCE [Suspect]
     Active Substance: PALBOCICLIB
     Indication: BREAST CANCER METASTATIC
     Dosage: 125 MG, CYCLIC (FOR 21 DAYS EVERY 28 DAYS)
     Route: 048
     Dates: start: 20170510
  3. IBRANCE [Suspect]
     Active Substance: PALBOCICLIB
     Dosage: 125 MG, CYCLIC (D1 - 21 Q 28 DAYS)
     Route: 048
     Dates: start: 20170510, end: 201708

REACTIONS (6)
  - Drug dose omission [Unknown]
  - Neoplasm progression [Unknown]
  - Skin odour abnormal [Unknown]
  - Cough [Unknown]
  - Malaise [Unknown]
  - Fatigue [Unknown]

NARRATIVE: CASE EVENT DATE: 2017
